FAERS Safety Report 24918558 (Version 2)
Quarter: 2025Q1

REPORT INFORMATION
  Report Type: Spontaneous
  Country: US (occurrence: US)
  Receive Date: 20250203
  Receipt Date: 20250214
  Transmission Date: 20250409
  Serious: Yes (Other)
  Sender: JOHNSON AND JOHNSON
  Company Number: US-JNJFOC-20250164869

PATIENT
  Age: 69 Year
  Sex: Male

DRUGS (16)
  1. RISPERIDONE [Suspect]
     Active Substance: RISPERIDONE
     Indication: Tardive dyskinesia
     Route: 048
     Dates: start: 20230920, end: 20241117
  2. RISPERIDONE [Suspect]
     Active Substance: RISPERIDONE
  3. RISPERIDONE [Suspect]
     Active Substance: RISPERIDONE
  4. RISPERIDONE [Suspect]
     Active Substance: RISPERIDONE
  5. RISPERIDONE [Suspect]
     Active Substance: RISPERIDONE
  6. RISPERIDONE [Suspect]
     Active Substance: RISPERIDONE
  7. INGREZZA [Interacting]
     Active Substance: VALBENAZINE
     Indication: Tardive dyskinesia
     Route: 048
  8. INGREZZA [Interacting]
     Active Substance: VALBENAZINE
     Route: 048
     Dates: start: 20241107, end: 20241117
  9. INGREZZA [Interacting]
     Active Substance: VALBENAZINE
     Route: 048
  10. BENZTROPINE [Concomitant]
     Active Substance: BENZTROPINE
  11. OMEPRAZOLE [Concomitant]
     Active Substance: OMEPRAZOLE
  12. PIOGLITAZONE [Concomitant]
     Active Substance: PIOGLITAZONE
  13. ATORVASTATIN [Concomitant]
     Active Substance: ATORVASTATIN
  14. LANTUS SOLOSTAR [Concomitant]
     Active Substance: INSULIN GLARGINE
  15. LISINOPRIL [Concomitant]
     Active Substance: LISINOPRIL
  16. METFORMIN [Concomitant]
     Active Substance: METFORMIN HYDROCHLORIDE

REACTIONS (5)
  - Mobility decreased [Recovering/Resolving]
  - Tardive dyskinesia [Unknown]
  - Drug interaction [Unknown]
  - Off label use [Unknown]
  - Depressed mood [Unknown]

NARRATIVE: CASE EVENT DATE: 20230920
